FAERS Safety Report 18124908 (Version 4)
Quarter: 2020Q4

REPORT INFORMATION
  Report Type: Spontaneous
  Country: IN (occurrence: IN)
  Receive Date: 20200807
  Receipt Date: 20201123
  Transmission Date: 20210113
  Serious: Yes (Death)
  Sender: FDA-Public Use
  Company Number: IN-CELGENEUS-IND-20200800724

PATIENT
  Age: 69 Year
  Sex: Female

DRUGS (25)
  1. ABRAXANE [Suspect]
     Active Substance: PACLITAXEL
     Dosage: 103.7 MILLIGRAM
     Route: 042
     Dates: start: 20200310, end: 20200310
  2. MEDI4736 (DURVALUMAB) [Suspect]
     Active Substance: DURVALUMAB
     Dosage: 1500 MILLIGRAM
     Route: 042
     Dates: start: 20200310, end: 20200310
  3. MEDI4736 (DURVALUMAB) [Suspect]
     Active Substance: DURVALUMAB
     Indication: NON-SMALL CELL LUNG CANCER STAGE IV
     Dosage: 1500 MILLIGRAM
     Route: 042
     Dates: start: 20191220, end: 20191220
  4. ABRAXANE [Suspect]
     Active Substance: PACLITAXEL
     Dosage: 145 MILLIGRAM
     Route: 042
     Dates: start: 20200303, end: 20200303
  5. CARBOPLATIN. [Suspect]
     Active Substance: CARBOPLATIN
     Indication: NON-SMALL CELL LUNG CANCER STAGE IV
     Dosage: 421 MILLIGRAM
     Route: 042
     Dates: start: 20191220, end: 20191220
  6. CARBOPLATIN. [Suspect]
     Active Substance: CARBOPLATIN
     Dosage: 331.4 MILLIGRAM
     Route: 042
     Dates: start: 20200121, end: 20200121
  7. CARBOPLATIN. [Suspect]
     Active Substance: CARBOPLATIN
     Dosage: 261.6 MILLIGRAM
     Route: 042
     Dates: start: 20200310, end: 20200310
  8. ABRAXANE [Suspect]
     Active Substance: PACLITAXEL
     Dosage: 141 MILLIGRAM
     Route: 042
     Dates: start: 20200204, end: 20200204
  9. ABRAXANE [Suspect]
     Active Substance: PACLITAXEL
     Dosage: 103.7 MILLIGRAM
     Route: 042
     Dates: start: 20200317, end: 20200317
  10. MEDI4736 (DURVALUMAB) [Suspect]
     Active Substance: DURVALUMAB
     Dosage: 1500 MILLIGRAM
     Route: 042
     Dates: start: 20200121, end: 20200121
  11. MEDI4736 (DURVALUMAB) [Suspect]
     Active Substance: DURVALUMAB
     Dosage: 1500 MILLIGRAM
     Route: 042
     Dates: start: 20200218, end: 20200218
  12. ABRAXANE [Suspect]
     Active Substance: PACLITAXEL
     Dosage: 103.7 MILLIGRAM
     Route: 042
     Dates: start: 20200327, end: 20200327
  13. CARBOPLATIN. [Suspect]
     Active Substance: CARBOPLATIN
     Dosage: 316.4 MILLIGRAM
     Route: 042
     Dates: start: 20200218, end: 20200218
  14. ABRAXANE [Suspect]
     Active Substance: PACLITAXEL
     Indication: MALIGNANT MELANOMA
     Dosage: 141 MILLIGRAM
     Route: 042
     Dates: start: 20200121, end: 20200121
  15. ABRAXANE [Suspect]
     Active Substance: PACLITAXEL
     Dosage: 141 MILLIGRAM
     Route: 042
     Dates: start: 20200128, end: 20200128
  16. ABRAXANE [Suspect]
     Active Substance: PACLITAXEL
     Dosage: 145 MILLIGRAM
     Route: 042
     Dates: start: 20200218, end: 20200218
  17. ABRAXANE [Suspect]
     Active Substance: PACLITAXEL
     Dosage: 145 MILLIGRAM
     Route: 042
     Dates: start: 20200225, end: 20200225
  18. PLACEBO [Suspect]
     Active Substance: UNSPECIFIED INGREDIENT
     Indication: NON-SMALL CELL LUNG CANCER STAGE IV
     Dosage: MAINTENANCE PHASE
     Route: 048
     Dates: start: 20200406, end: 20200502
  19. GRILINCTUS [Concomitant]
     Indication: COUGH
     Route: 065
     Dates: start: 20200513
  20. ABRAXANE [Suspect]
     Active Substance: PACLITAXEL
     Indication: NON-SMALL CELL LUNG CANCER STAGE IV
     Dosage: 145 MILLIGRAM
     Route: 042
     Dates: start: 20191220, end: 20191220
  21. ABRAXANE [Suspect]
     Active Substance: PACLITAXEL
     Indication: PANCREATIC CARCINOMA
     Dosage: 145 MILLIGRAM
     Route: 042
     Dates: start: 20191226, end: 20191226
  22. ABRAXANE [Suspect]
     Active Substance: PACLITAXEL
     Indication: NON-SMALL CELL LUNG CANCER
     Dosage: 145 MILLIGRAM
     Route: 042
     Dates: start: 20200103, end: 20200103
  23. MEDI4736 (DURVALUMAB) [Suspect]
     Active Substance: DURVALUMAB
     Dosage: 1500 MILLIGRAM
     Route: 042
     Dates: start: 20200406, end: 20200406
  24. ENAROS [Concomitant]
     Indication: HYPERTENSION
     Dosage: 5 MILLIGRAM
     Route: 048
     Dates: start: 2013
  25. KESOL [Concomitant]
     Indication: HYPOKALAEMIA
     Route: 048
     Dates: start: 20200526, end: 20200526

REACTIONS (1)
  - Non-small cell lung cancer stage IV [Fatal]

NARRATIVE: CASE EVENT DATE: 20200607
